FAERS Safety Report 20084527 (Version 4)
Quarter: 2021Q4

REPORT INFORMATION
  Report Type: Spontaneous
  Country: PT (occurrence: PT)
  Receive Date: 20211118
  Receipt Date: 20211229
  Transmission Date: 20220303
  Serious: Yes (Hospitalization, Other)
  Sender: FDA-Public Use
  Company Number: PT-AUROBINDO-AUR-APL-2021-045707

PATIENT
  Age: 64 Year
  Sex: Female

DRUGS (1)
  1. AMIODARONE [Suspect]
     Active Substance: AMIODARONE
     Indication: Atrial fibrillation
     Dosage: 400 MILLIGRAM, ONCE A DAY (INCREASE IN THE DOSE TO 400MG PER DAY FOR 7 MONTHS)
     Route: 065

REACTIONS (21)
  - Asthenia [Recovering/Resolving]
  - Cough [Recovering/Resolving]
  - Dyspnoea exertional [Recovering/Resolving]
  - Decreased appetite [Recovering/Resolving]
  - Interstitial lung disease [Recovered/Resolved]
  - Hepatic cytolysis [Recovering/Resolving]
  - Lymphadenopathy mediastinal [Recovering/Resolving]
  - Normochromic normocytic anaemia [Recovering/Resolving]
  - Pulmonary mass [Recovering/Resolving]
  - Rales [Recovering/Resolving]
  - Normochromic anaemia [Recovering/Resolving]
  - Toxicity to various agents [Recovering/Resolving]
  - Normocytic anaemia [Recovering/Resolving]
  - Weight decreased [Recovering/Resolving]
  - Hepatocellular injury [Unknown]
  - Chest pain [Recovering/Resolving]
  - Pulmonary toxicity [Unknown]
  - Organising pneumonia [Recovering/Resolving]
  - Pyrexia [Recovering/Resolving]
  - Night sweats [Recovering/Resolving]
  - Auscultation [Recovering/Resolving]
